FAERS Safety Report 20760477 (Version 3)
Quarter: 2022Q3

REPORT INFORMATION
  Report Type: Spontaneous
  Country: JP (occurrence: JP)
  Receive Date: 20220428
  Receipt Date: 20220926
  Transmission Date: 20221027
  Serious: Yes (Hospitalization)
  Sender: FDA-Public Use
  Company Number: JP-JNJFOC-20220451896

PATIENT
  Age: 49 Year
  Sex: Male
  Weight: 57.8 kg

DRUGS (12)
  1. STELARA [Suspect]
     Active Substance: USTEKINUMAB
     Indication: Crohn^s disease
     Dosage: DOSE UNKNOWN
     Route: 041
     Dates: start: 202202
  2. STELARA [Suspect]
     Active Substance: USTEKINUMAB
     Indication: Crohn^s disease
     Dosage: DOSE UNKNOWN
     Route: 058
     Dates: start: 2022
  3. IMURAN [Concomitant]
     Active Substance: AZATHIOPRINE
     Indication: Product used for unknown indication
     Dosage: DOSE UNKNOWN
     Route: 048
     Dates: start: 200106
  4. IMURAN [Concomitant]
     Active Substance: AZATHIOPRINE
     Route: 048
     Dates: start: 2022
  5. MESALAMINE [Concomitant]
     Active Substance: MESALAMINE
     Indication: Product used for unknown indication
     Dosage: DOSE UNKNOWN
     Route: 048
     Dates: start: 199012
  6. MESALAMINE [Concomitant]
     Active Substance: MESALAMINE
     Dosage: DOSE UNKNOWN
     Route: 048
     Dates: start: 2022
  7. AMINO ACIDS\CARBOHYDRATES\MINERALS\SOYBEAN OIL\VITAMINS [Concomitant]
     Active Substance: AMINO ACIDS\CARBOHYDRATES\MINERALS\SOYBEAN OIL\VITAMINS
     Indication: Product used for unknown indication
     Dosage: DOSE UNKNOWN
     Route: 065
  8. AMINO ACIDS\CARBOHYDRATES\MINERALS\SOYBEAN OIL\VITAMINS [Concomitant]
     Active Substance: AMINO ACIDS\CARBOHYDRATES\MINERALS\SOYBEAN OIL\VITAMINS
     Dosage: DOSE UNKNOWN
     Route: 065
     Dates: start: 2022
  9. AMINO ACIDS\CARBOHYDRATES\MINERALS\SOYBEAN OIL\VITAMINS [Concomitant]
     Active Substance: AMINO ACIDS\CARBOHYDRATES\MINERALS\SOYBEAN OIL\VITAMINS
     Dosage: DOSE UNKNOWN
     Route: 065
     Dates: start: 2022
  10. LANSOPRAZOLE [Concomitant]
     Active Substance: LANSOPRAZOLE
     Indication: Product used for unknown indication
     Route: 048
  11. EPINASTINE HYDROCHLORIDE [Concomitant]
     Active Substance: EPINASTINE HYDROCHLORIDE
     Indication: Product used for unknown indication
     Route: 048
  12. ZINC ACETATE DIHYDRATE [Concomitant]
     Indication: Product used for unknown indication
     Route: 048

REACTIONS (2)
  - Small intestinal perforation [Unknown]
  - Peritonitis [Unknown]

NARRATIVE: CASE EVENT DATE: 20220101
